FAERS Safety Report 6878111-0 (Version None)
Quarter: 2010Q2

REPORT INFORMATION
  Report Type: 
  Country: None (occurrence: None)
  Receive Date: 20100616
  Receipt Date: 20100504
  Transmission Date: 20101027
  Serious: No
  Sender: FDA-Public Use
  Company Number: DSA_42591_2010

PATIENT
  Sex: Female

DRUGS (7)
  1. XENAZINE [Suspect]
     Indication: HUNTINGTON'S CHOREA
     Dosage: 12.5 MG TID ORAL, 25 MG BID ORAL
     Route: 048
     Dates: start: 20100101, end: 20100412
  2. XENAZINE [Suspect]
     Indication: HUNTINGTON'S CHOREA
     Dosage: 12.5 MG TID ORAL, 25 MG BID ORAL
     Route: 048
     Dates: start: 20100413
  3. SINEMET [Concomitant]
  4. BOTOX [Concomitant]
  5. CRESTOR [Concomitant]
  6. FENOFIBRATE [Concomitant]
  7. VALIUM [Concomitant]

REACTIONS (4)
  - ASTHENIA [None]
  - DEPRESSION [None]
  - FEELING JITTERY [None]
  - TREMOR [None]
